FAERS Safety Report 13829899 (Version 1)
Quarter: 2017Q3

REPORT INFORMATION
  Report Type: Spontaneous
  Country: TR (occurrence: TR)
  Receive Date: 20170803
  Receipt Date: 20170803
  Transmission Date: 20171127
  Serious: Yes (Death)
  Sender: FDA-Public Use
  Company Number: PHHY2017TR113677

PATIENT
  Age: 43 Year
  Sex: Female

DRUGS (5)
  1. GEMCITABINE [Suspect]
     Active Substance: GEMCITABINE\GEMCITABINE HYDROCHLORIDE
     Indication: METASTASES TO CENTRAL NERVOUS SYSTEM
     Route: 065
     Dates: start: 201006
  2. CISPLATIN. [Suspect]
     Active Substance: CISPLATIN
     Indication: METASTASES TO CENTRAL NERVOUS SYSTEM
     Route: 065
  3. CARBOPLATIN. [Suspect]
     Active Substance: CARBOPLATIN
     Indication: METASTASES TO CENTRAL NERVOUS SYSTEM
     Route: 065
     Dates: start: 201006
  4. DOCETAXEL. [Suspect]
     Active Substance: DOCETAXEL
     Indication: METASTASES TO CENTRAL NERVOUS SYSTEM
     Route: 065
  5. PEMETREXED. [Suspect]
     Active Substance: PEMETREXED
     Indication: METASTASES TO CENTRAL NERVOUS SYSTEM
     Route: 065

REACTIONS (3)
  - Seizure [Fatal]
  - Disease progression [Fatal]
  - Metastases to central nervous system [Fatal]

NARRATIVE: CASE EVENT DATE: 20150226
